FAERS Safety Report 9624242 (Version 1)
Quarter: 2013Q4

REPORT INFORMATION
  Report Type: Spontaneous
  Country: US (occurrence: US)
  Receive Date: 20131015
  Receipt Date: 20131015
  Transmission Date: 20140711
  Serious: No
  Sender: FDA-Public Use
  Company Number: US-BAYER-2013-124195

PATIENT
  Sex: Female

DRUGS (2)
  1. ALEVE CAPLET [Suspect]
     Indication: HEADACHE
     Dosage: UNK DF, UNK
  2. ALEVE CAPLET [Suspect]
     Indication: MYALGIA

REACTIONS (5)
  - Oral discomfort [None]
  - Glossodynia [None]
  - Paraesthesia [None]
  - Insomnia [None]
  - Pruritus [None]
